FAERS Safety Report 18300415 (Version 7)
Quarter: 2020Q4

REPORT INFORMATION
  Report Type: Spontaneous
  Country: US (occurrence: US)
  Receive Date: 20200923
  Receipt Date: 20201207
  Transmission Date: 20210113
  Serious: Yes (Other)
  Sender: FDA-Public Use
  Company Number: US-PFIZER INC-2020365549

PATIENT
  Age: 45 Year
  Sex: Female
  Weight: 66.86 kg

DRUGS (4)
  1. PREMARIN [Suspect]
     Active Substance: ESTROGENS, CONJUGATED
     Indication: HYSTERECTOMY
     Dosage: UNK(1/2 INTRAVAGINAL APPLICATOR NIGHTLY X 3 WEEKS; THEN 2-3 TIMES WEEKLY THEREAFTER)
     Route: 067
     Dates: start: 202006
  2. PREMARIN [Suspect]
     Active Substance: ESTROGENS, CONJUGATED
     Indication: VULVOVAGINAL DRYNESS
  3. RYBELSUS [Concomitant]
     Active Substance: SEMAGLUTIDE
     Indication: DIABETES MELLITUS
     Dosage: 7 MG (7MG TABLET TAKEN EVERY MORNING BETWEEN 6:30AM-7:00AM)
     Dates: start: 202008
  4. PREMARIN [Suspect]
     Active Substance: ESTROGENS, CONJUGATED
     Indication: HYSTERECTOMY
     Dosage: 1.25 MG, DAILY (1.25MG TABLET TAKEN BY MOUTH EVERY DAY)
     Route: 048
     Dates: start: 202006

REACTIONS (2)
  - Off label use [Unknown]
  - Fungal infection [Recovering/Resolving]

NARRATIVE: CASE EVENT DATE: 2020
